FAERS Safety Report 14706370 (Version 1)
Quarter: 2018Q2

REPORT INFORMATION
  Report Type: Spontaneous
  Country: CN (occurrence: CN)
  Receive Date: 20180402
  Receipt Date: 20180402
  Transmission Date: 20180711
  Serious: Yes (Hospitalization)
  Sender: FDA-Public Use
  Company Number: CN-NOVOPROD-592631

PATIENT
  Age: 69 Year
  Sex: Male
  Weight: 90 kg

DRUGS (5)
  1. CREATINE PHOSPHATE SODIUM [Suspect]
     Active Substance: CREATINE
     Indication: CARDIAC VALVE DISEASE
     Dosage: 1 G, BID
     Route: 041
     Dates: start: 20171212, end: 20171221
  2. MAGNESIUM SULFATE. [Suspect]
     Active Substance: MAGNESIUM SULFATE
     Indication: CARDIAC VALVE DISEASE
     Dosage: 10 ML, BID
     Route: 041
     Dates: start: 20171212, end: 20171221
  3. POTASSIUM CHLORIDE. [Suspect]
     Active Substance: POTASSIUM CHLORIDE
     Indication: CARDIAC VALVE DISEASE
     Dosage: 3 ML, BID
     Route: 041
     Dates: start: 20171212, end: 20171221
  4. GLUCOSE INJECTION [Concomitant]
     Active Substance: DEXTROSE
     Dosage: 100 ML, BID
     Route: 041
     Dates: start: 20171212, end: 20171221
  5. NOVOLIN R [Suspect]
     Active Substance: INSULIN HUMAN
     Indication: CARDIAC VALVE DISEASE
     Dosage: 2 IU, BID
     Route: 041
     Dates: start: 20171212, end: 20171221

REACTIONS (7)
  - Tachypnoea [Recovering/Resolving]
  - Bacteraemia [Unknown]
  - Arrhythmia [Recovering/Resolving]
  - Chills [Recovering/Resolving]
  - Pallor [Recovering/Resolving]
  - Off label use [Unknown]
  - Pyrexia [Recovering/Resolving]

NARRATIVE: CASE EVENT DATE: 20171212
